FAERS Safety Report 9351642 (Version 1)
Quarter: 2013Q2

REPORT INFORMATION
  Report Type: Spontaneous
  Country: FR (occurrence: FR)
  Receive Date: 20130617
  Receipt Date: 20130617
  Transmission Date: 20140414
  Serious: Yes (Other)
  Sender: FDA-Public Use
  Company Number: FR-TEVA-412471ISR

PATIENT
  Age: 89 Year
  Sex: Female
  Weight: 65 kg

DRUGS (2)
  1. FUROSEMIDE TEVA [Suspect]
     Indication: OEDEMA
     Dosage: 2 DOSAGE FORMS DAILY;
  2. CRESTOR [Concomitant]
     Dosage: ON EVENING

REACTIONS (3)
  - Anuria [Not Recovered/Not Resolved]
  - Dyspnoea [Not Recovered/Not Resolved]
  - Somnolence [Not Recovered/Not Resolved]
